FAERS Safety Report 5191437-4 (Version None)
Quarter: 2006Q4

REPORT INFORMATION
  Report Type: 
  Country: None (occurrence: None)
  Receive Date: 20061226
  Receipt Date: 20020702
  Transmission Date: 20070319
  Serious: Yes (Hospitalization)
  Sender: FDA-Public Use
  Company Number: FR-MERCK-0207USA00529

PATIENT
  Age: 69 Year
  Sex: Female

DRUGS (6)
  1. MODURETIC 5-50 [Suspect]
     Route: 048
     Dates: end: 20020426
  2. EXELON [Suspect]
     Route: 048
     Dates: end: 20020426
  3. ZOLPIDEM TARTRATE [Suspect]
     Route: 048
     Dates: end: 20020426
  4. DAFLON (DIOSMIN) [Suspect]
     Route: 048
  5. LEXOMIL [Suspect]
     Route: 048
  6. DEPAMIDE [Suspect]
     Route: 048

REACTIONS (1)
  - PARKINSONISM [None]
